FAERS Safety Report 9150943 (Version 1)
Quarter: 2013Q1

REPORT INFORMATION
  Report Type: Spontaneous
  Country: US (occurrence: US)
  Receive Date: 20130308
  Receipt Date: 20130308
  Transmission Date: 20140127
  Serious: No
  Sender: FDA-Public Use
  Company Number: US-GLAXOSMITHKLINE-A0970364A

PATIENT
  Age: 27 Year
  Sex: Female

DRUGS (2)
  1. OLUX-E FOAM 0.05% [Suspect]
     Indication: KERATOSIS PILARIS
     Dosage: 1APP SINGLE DOSE
     Route: 061
     Dates: start: 20120315, end: 20120315
  2. TRINESSA [Concomitant]

REACTIONS (6)
  - Fatigue [Recovered/Resolved]
  - Chills [Recovered/Resolved]
  - Tremor [Recovered/Resolved]
  - Feeling cold [Recovered/Resolved]
  - Feeling abnormal [Recovered/Resolved]
  - Heart rate increased [Unknown]
